FAERS Safety Report 5684717-7 (Version None)
Quarter: 2008Q1

REPORT INFORMATION
  Report Type: 
  Country: None (occurrence: None)
  Receive Date: 20080328
  Receipt Date: 19801006
  Transmission Date: 20080703
  Serious: Yes (Death, Other)
  Sender: FDA-Public Use
  Company Number: NL-ROCHE-3315

PATIENT
  Age: 48 Year
  Sex: Female

DRUGS (7)
  1. NAPROSYN [Suspect]
     Indication: DRUG USE FOR UNKNOWN INDICATION
     Route: 048
     Dates: start: 19781001, end: 19791201
  2. DIAZEPAM [Concomitant]
  3. RESTENIL [Concomitant]
  4. INDOCIN [Concomitant]
  5. GENTROL [Concomitant]
  6. FUROSEMIDE [Concomitant]
  7. IRON SUPPLEMENT NOS [Concomitant]

REACTIONS (7)
  - ANAEMIA [None]
  - BONE MARROW FAILURE [None]
  - DEATH [None]
  - IMMUNOGLOBULINS INCREASED [None]
  - INFARCTION [None]
  - LIVER DISORDER [None]
  - RENAL DISORDER [None]
